FAERS Safety Report 15244081 (Version 1)
Quarter: 2018Q4

REPORT INFORMATION
  Report Type: Spontaneous
  Country: IT (occurrence: IT)
  Receive Date: 20180806
  Receipt Date: 20180806
  Transmission Date: 20190204
  Serious: Yes (Other)
  Sender: FDA-Public Use
  Company Number: IT-HIKMA PHARMACEUTICALS USA INC.-IT-H14001-18-06454

PATIENT
  Age: 56 Year
  Sex: Male

DRUGS (4)
  1. EPIRUBICIN [Suspect]
     Active Substance: EPIRUBICIN
     Indication: HEPATOCELLULAR CARCINOMA
     Route: 013
  2. ETHIODIZED OIL [Concomitant]
     Active Substance: ETHIODIZED OIL
     Indication: HEPATOCELLULAR CARCINOMA
     Route: 065
  3. EPIRUBICIN [Suspect]
     Active Substance: EPIRUBICIN
     Route: 065
  4. EPIRUBICIN [Suspect]
     Active Substance: EPIRUBICIN
     Indication: HEPATOCELLULAR CARCINOMA
     Dosage: INFUSED THROUGH A SEGMENTAL ARTERY

REACTIONS (8)
  - Neutropenia [Recovered/Resolved]
  - Anaemia [Recovered/Resolved]
  - Infusion site extravasation [Recovered/Resolved]
  - Livedo reticularis [Recovered/Resolved]
  - Thrombocytopenia [Recovered/Resolved]
  - Pleural effusion [Recovering/Resolving]
  - Alopecia [Unknown]
  - Hepatic enzyme increased [Recovered/Resolved]
